FAERS Safety Report 24112540 (Version 1)
Quarter: 2024Q3

REPORT INFORMATION
  Report Type: Report from Study
  Country: US (occurrence: None)
  Receive Date: 20240719
  Receipt Date: 20240719
  Transmission Date: 20241017
  Serious: Yes (Other)
  Sender: ASTRAZENECA
  Company Number: 2021A735772

PATIENT
  Age: 66 Year
  Sex: Female
  Weight: 55.8 kg

DRUGS (1)
  1. LYNPARZA [Suspect]
     Active Substance: OLAPARIB
     Indication: Ovarian cancer
     Route: 048
     Dates: start: 20210806

REACTIONS (2)
  - Hair growth abnormal [Unknown]
  - Alopecia [Unknown]
